FAERS Safety Report 8807057 (Version 1)
Quarter: 2012Q4

REPORT INFORMATION
  Report Type: 
  Country: US (occurrence: US)
  Receive Date: 20120925
  Receipt Date: 20120925
  Transmission Date: 20130627
  Serious: No
  Sender: FDA-Public Use
  Company Number: US-B.I. PHARMACEUTICALS,INC./RIDGEFIELD-2012-BP-23129BP

PATIENT
  Age: 48 Year
  Sex: Female
  Weight: 71 kg

DRUGS (9)
  1. SPIRIVA [Suspect]
     Indication: CHRONIC OBSTRUCTIVE PULMONARY DISEASE
     Dosage: 18 mcg
     Route: 055
     Dates: start: 2009
  2. SPIRIVA [Suspect]
     Route: 048
     Dates: start: 20120920, end: 20120920
  3. PROAIR [Concomitant]
     Indication: CHRONIC OBSTRUCTIVE PULMONARY DISEASE
     Route: 055
     Dates: start: 2009
  4. OMEPRAZOLE [Concomitant]
     Indication: GASTRIC DISORDER
     Route: 048
     Dates: start: 2011
  5. UNSPECIFIED [Concomitant]
     Indication: MUSCLE DISORDER
     Dosage: 1500 mg
     Route: 048
     Dates: start: 2009
  6. XANAX [Concomitant]
     Indication: ANXIETY
     Dosage: 2 mg
     Route: 048
  7. XANAX [Concomitant]
     Indication: DEPRESSION
  8. PREDNISONE [Concomitant]
     Indication: SYSTEMIC LUPUS ERYTHEMATOSUS
     Dosage: 40 mg
     Route: 048
     Dates: start: 20120912
  9. NITROGLYCERIN [Concomitant]
     Indication: CARDIAC DISORDER

REACTIONS (1)
  - Incorrect route of drug administration [Recovered/Resolved]
